FAERS Safety Report 5803917-6 (Version None)
Quarter: 2008Q3

REPORT INFORMATION
  Report Type: 
  Country: None (occurrence: None)
  Receive Date: 20080703
  Receipt Date: 20080618
  Transmission Date: 20090109
  Serious: Yes (Other)
  Sender: FDA-Public Use
  Company Number: 8033872

PATIENT
  Age: 68 Year
  Sex: Male

DRUGS (6)
  1. PREDNISOLONE [Suspect]
     Dosage: ONCE
     Dates: start: 20051027, end: 20051027
  2. PREDNISOLONE [Suspect]
     Dosage: ONCE
     Dates: start: 20051122, end: 20051122
  3. RITUXIMAB [Suspect]
     Indication: B-CELL LYMPHOMA
     Dosage: ONCE
     Dates: start: 20051122, end: 20051122
  4. CYCLOPHOSPHAMIDE [Concomitant]
  5. VINCRISTINE [Concomitant]
  6. MITOXANTRONE [Concomitant]

REACTIONS (4)
  - ALANINE AMINOTRANSFERASE INCREASED [None]
  - ASPARTATE AMINOTRANSFERASE INCREASED [None]
  - CONDITION AGGRAVATED [None]
  - HEPATITIS C VIRUS TEST [None]
